FAERS Safety Report 17899611 (Version 2)
Quarter: 2020Q3

REPORT INFORMATION
  Report Type: Spontaneous
  Country: JP (occurrence: JP)
  Receive Date: 20200616
  Receipt Date: 20200701
  Transmission Date: 20201103
  Serious: Yes (Other)
  Sender: FDA-Public Use
  Company Number: NVSJ2020JP005786

PATIENT
  Age: 78 Year
  Sex: Male

DRUGS (1)
  1. EQUMET [Suspect]
     Active Substance: METFORMIN HYDROCHLORIDE\VILDAGLIPTIN
     Indication: TYPE 2 DIABETES MELLITUS
     Dosage: METFORMIN 250 MG/VILDAGLIPTIN 50 MG, 2 TABLETS DAILY
     Route: 048

REACTIONS (2)
  - Autoimmune pancreatitis [Recovering/Resolving]
  - Glycosylated haemoglobin increased [Recovering/Resolving]
